FAERS Safety Report 10370500 (Version 1)
Quarter: 2014Q3

REPORT INFORMATION
  Report Type: Spontaneous
  Country: US (occurrence: None)
  Receive Date: 20140807
  Receipt Date: 20140807
  Transmission Date: 20150326
  Serious: Yes (Hospitalization)
  Sender: FDA-Public Use
  Company Number: None

PATIENT
  Age: 67 Year
  Sex: Female

DRUGS (9)
  1. HUMIRA [Suspect]
     Active Substance: ADALIMUMAB
     Indication: PRODUCT USED FOR UNKNOWN INDICATION
     Route: 058
     Dates: start: 20140422
  2. PROTONIX [Suspect]
     Active Substance: PANTOPRAZOLE SODIUM
  3. METOPROLOL [Suspect]
     Active Substance: METOPROLOL
  4. ASPIRIN LOW DOSE [Suspect]
     Active Substance: ASPIRIN
  5. FOLIC ACID. [Suspect]
     Active Substance: FOLIC ACID
  6. HYDROCHLOROTHIAZIDE. [Suspect]
     Active Substance: HYDROCHLOROTHIAZIDE
  7. FISH OIL [Suspect]
     Active Substance: FISH OIL
  8. SYNTHROID [Suspect]
     Active Substance: LEVOTHYROXINE SODIUM
  9. NITROGLYCERIN. [Suspect]
     Active Substance: NITROGLYCERIN

REACTIONS (3)
  - Abdominal pain [None]
  - Hepatic enzyme increased [None]
  - Food poisoning [None]

NARRATIVE: CASE EVENT DATE: 20140806
